FAERS Safety Report 8113076-5 (Version None)
Quarter: 2012Q1

REPORT INFORMATION
  Report Type: 
  Country: None (occurrence: None)
  Receive Date: 20120203
  Receipt Date: 20120124
  Transmission Date: 20120608
  Serious: Yes (Congenital Anomaly)
  Sender: FDA-Public Use
  Company Number: FR-GLAXOSMITHKLINE-B0777076B

PATIENT
  Sex: Female
  Weight: 2.4 kg

DRUGS (3)
  1. VALPROATE SODIUM [Suspect]
     Indication: MATERNAL EXPOSURE TIMING UNSPECIFIED
     Dosage: 250MG TWICE PER DAY
     Route: 064
     Dates: start: 20070422, end: 20071212
  2. LAMICTAL [Suspect]
     Indication: MATERNAL EXPOSURE TIMING UNSPECIFIED
     Dosage: 100MG TWICE PER DAY
     Route: 064
     Dates: start: 20070422, end: 20071212
  3. FOLIC ACID [Concomitant]
     Indication: MATERNAL EXPOSURE TIMING UNSPECIFIED
     Route: 064
     Dates: start: 20070101

REACTIONS (3)
  - FOETAL EXPOSURE DURING PREGNANCY [None]
  - HYDROCEPHALUS [None]
  - BLOOD PRESSURE INCREASED [None]
